FAERS Safety Report 18595034 (Version 1)
Quarter: 2020Q4

REPORT INFORMATION
  Report Type: Report from Study
  Country: SE (occurrence: IT)
  Receive Date: 20201209
  Receipt Date: 20201209
  Transmission Date: 20210114
  Serious: Yes (Other)
  Sender: FDA-Public Use
  Company Number: GB-ELI_LILLY_AND_COMPANY-IT202012000577

PATIENT

DRUGS (1)
  1. BARICITINIB. [Suspect]
     Active Substance: BARICITINIB
     Indication: COVID-19 PNEUMONIA
     Dosage: 4 MG, DAILY
     Route: 065
     Dates: start: 2020

REACTIONS (1)
  - Device related bacteraemia [Unknown]
